FAERS Safety Report 10143260 (Version 3)
Quarter: 2014Q2

REPORT INFORMATION
  Report Type: Spontaneous
  Country: GB (occurrence: None)
  Receive Date: 20140428
  Receipt Date: 20140527
  Transmission Date: 20141212
  Serious: Yes (Other)
  Sender: FDA-Public Use
  Company Number: SYM-2014-20013

PATIENT
  Age: 49 Year
  Sex: Male

DRUGS (4)
  1. METRONIDAZOLE [Suspect]
     Indication: GINGIVITIS
     Route: 048
     Dates: start: 20140402, end: 20140402
  2. TRAMADOL HYDROCHLORIDE (TRAMADOL HYDROCHLORIDE) [Suspect]
     Indication: PRODUCT USED FOR UNKNOWN INDICATION
  3. PARACETAMOL (PARACETAMOL) (PARACETAMOL) [Suspect]
     Indication: PRODUCT USED FOR UNKNOWN INDICATION
  4. MOVICOL (POLYETHYL, GLYC. W/POTAS. CHLOR./SOD. BICARB.) (SODIUM BICARBONATE, POTASSIUM CHLORIDE, MACROGOL) [Concomitant]
     Indication: PRODUCT USED FOR UNKNOWN INDICATION

REACTIONS (14)
  - Inhibitory drug interaction [None]
  - Neck pain [None]
  - Musculoskeletal stiffness [None]
  - Myalgia [None]
  - Tinnitus [None]
  - Pain [None]
  - Headache [None]
  - Musculoskeletal disorder [None]
  - Confusional state [None]
  - Vision blurred [None]
  - Discomfort [None]
  - Vision blurred [None]
  - Myalgia [None]
  - Migraine [None]
